FAERS Safety Report 13709095 (Version 1)
Quarter: 2017Q3

REPORT INFORMATION
  Report Type: Spontaneous
  Country: US (occurrence: US)
  Receive Date: 20170702
  Receipt Date: 20170702
  Transmission Date: 20171127
  Serious: Yes (Other)
  Sender: FDA-Public Use
  Company Number: US-TEVA-784167USA

PATIENT
  Age: 46 Year
  Sex: Female

DRUGS (1)
  1. MEGESTROL [Suspect]
     Active Substance: MEGESTROL
     Dosage: 80 MILLIGRAM DAILY;
     Route: 065

REACTIONS (2)
  - Blindness [Unknown]
  - Meningioma [Recovered/Resolved]
